FAERS Safety Report 14419767 (Version 1)
Quarter: 2018Q1

REPORT INFORMATION
  Report Type: Spontaneous
  Country: US (occurrence: US)
  Receive Date: 20180121
  Receipt Date: 20180121
  Transmission Date: 20180509
  Serious: Yes (Disabling)
  Sender: FDA-Public Use
  Company Number: None

PATIENT
  Age: 29 Year
  Sex: Female
  Weight: 85.5 kg

DRUGS (2)
  1. CHLORHEXIDINE [Concomitant]
     Active Substance: CHLORHEXIDINE
  2. CLOROX SANITIZING WIPES (CHLORHEXIDINE) [Suspect]
     Active Substance: CHLORHEXIDINE
     Indication: INFECTION PROPHYLAXIS

REACTIONS (2)
  - Dermatitis [None]
  - Rash [None]

NARRATIVE: CASE EVENT DATE: 20180120
